FAERS Safety Report 23978186 (Version 1)
Quarter: 2024Q2

REPORT INFORMATION
  Report Type: Spontaneous
  Country: GB (occurrence: GB)
  Receive Date: 20240614
  Receipt Date: 20240614
  Transmission Date: 20240716
  Serious: Yes (Other)
  Sender: FDA-Public Use
  Company Number: None

PATIENT
  Sex: Female

DRUGS (2)
  1. ABEMACICLIB [Suspect]
     Active Substance: ABEMACICLIB
     Indication: Product used for unknown indication
     Dosage: 150 MG, UNKNOWN
     Route: 065
  2. ABEMACICLIB [Suspect]
     Active Substance: ABEMACICLIB
     Dosage: 100 MG, UNKNOWN (REDUCTION OF 33%)
     Route: 065

REACTIONS (1)
  - Toxicity to various agents [Unknown]
